FAERS Safety Report 25917175 (Version 1)
Quarter: 2025Q4

REPORT INFORMATION
  Report Type: Spontaneous
  Country: US (occurrence: US)
  Receive Date: 20251014
  Receipt Date: 20251014
  Transmission Date: 20260118
  Serious: No
  Sender: SANDOZ
  Company Number: US-SANDOZ-SDZ2025US075033

PATIENT
  Sex: Female

DRUGS (24)
  1. AZITHROMYCIN [Suspect]
     Active Substance: AZITHROMYCIN
     Indication: Mycobacterial infection
     Dosage: UNK
     Route: 065
  2. ETHAMBUTOL [Suspect]
     Active Substance: ETHAMBUTOL HYDROCHLORIDE
     Indication: Mycobacterial infection
     Dosage: UNK
     Route: 065
  3. RIFAMPIN [Suspect]
     Active Substance: RIFAMPIN
     Indication: Mycobacterial infection
     Dosage: UNK
     Route: 065
  4. ADVAIR HFA [Concomitant]
     Active Substance: FLUTICASONE PROPIONATE\SALMETEROL XINAFOATE
     Indication: Product used for unknown indication
     Dosage: 500-50 MCG/ACT, TAKE 1 INHALATION BY INHALATION 2 TIMES DAILY.
     Route: 055
     Dates: start: 20250912
  5. AIMOVIG [Concomitant]
     Active Substance: ERENUMAB-AOOE
     Indication: Product used for unknown indication
     Dosage: 70 MG/ML, INJECT 1 ML UNDER THE SKIN EVERY 28 DAYS.
     Route: 058
     Dates: start: 20250430
  6. ASPIRIN [Concomitant]
     Active Substance: ASPIRIN
     Indication: Lipid management
     Dosage: 81 MG, NIGHTLY.
     Route: 048
  7. COREG [Concomitant]
     Active Substance: CARVEDILOL
     Indication: Product used for unknown indication
     Dosage: 3.125 MG, BID (WITH MEALS)
     Route: 048
     Dates: start: 20250613
  8. DELTASONE [Concomitant]
     Active Substance: PREDNISONE
     Indication: Product used for unknown indication
     Dosage: 2.5 MG, QD
     Route: 048
     Dates: start: 20250918
  9. FOSAMAX [Concomitant]
     Active Substance: ALENDRONATE SODIUM
     Indication: Product used for unknown indication
     Dosage: 70 MG, QW, TAKE WITH WATER 30 MIN BEFORE BREAKFAST
     Route: 048
     Dates: start: 20250910
  10. LIPITOR [Concomitant]
     Active Substance: ATORVASTATIN CALCIUM
     Indication: Cerebrovascular accident
     Dosage: 20 MG, NIGHTLY.
     Route: 065
     Dates: start: 20250613
  11. LIPITOR [Concomitant]
     Active Substance: ATORVASTATIN CALCIUM
     Indication: Lipids increased
  12. LYRICA [Concomitant]
     Active Substance: PREGABALIN
     Indication: Neuralgia
     Dosage: 50 MG, BID
     Route: 048
     Dates: start: 20250617
  13. MYAMBUTOL [Concomitant]
     Active Substance: ETHAMBUTOL HYDROCHLORIDE
     Indication: Product used for unknown indication
     Dosage: 400 MG, TAKE 5 TABLETS BY MOUTH 3 TIMES WEEKLY.
     Route: 048
     Dates: start: 20250821
  14. PRILOSEC [Concomitant]
     Active Substance: OMEPRAZOLE MAGNESIUM
     Indication: Product used for unknown indication
     Dosage: 20 MG, BID TAKE 1 CAPSULE BY MOUTH EVERY MORNING (BEFORE BREAKFAST) ON AN EMPTY STOMACH.
     Route: 048
  15. PROAIR HFA [Concomitant]
     Active Substance: ALBUTEROL SULFATE
     Indication: Wheezing
     Dosage: TAKE 2 PUFFS BY INHALATION EVERY 4 HOURS AS NEEDED, (90 BASE), MCG/ACT INHALER 3
     Route: 055
     Dates: start: 20250127
  16. PROAIR HFA [Concomitant]
     Active Substance: ALBUTEROL SULFATE
     Indication: Dyspnoea
  17. PROVENTIL HFA [Concomitant]
     Active Substance: ALBUTEROL SULFATE
     Indication: Wheezing
     Dosage: TAKE 2 PUFFS BY INHALATION EVERY 4 HOURS AS NEEDED, (90 BASE), MCG/ACT INHALER 3
     Route: 055
     Dates: start: 20250127
  18. PROVENTIL HFA [Concomitant]
     Active Substance: ALBUTEROL SULFATE
     Indication: Dyspnoea
  19. RIFADIN [Concomitant]
     Active Substance: RIFAMPIN
     Indication: Product used for unknown indication
     Dosage: 300 MG, TIW
     Route: 048
     Dates: start: 20250821, end: 20251006
  20. SYSTANE (HYPROMELLOSE 2910 (4000 MPA.S)) [Concomitant]
     Active Substance: HYPROMELLOSE 2910 (4000 MPA.S)
     Indication: Product used for unknown indication
     Dosage: 0.4-0.3 %, ADMINISTER 1 DROP INTO BOTH EYES DAILY AS NEEDED (DRY EYES).
     Route: 047
  21. TYLENOL [Concomitant]
     Active Substance: ACETAMINOPHEN
     Indication: Pain
     Dosage: 500 MG, QD (DAILY AS NEEDED)
     Route: 048
  22. VENTOLIN HFA [Concomitant]
     Active Substance: ALBUTEROL SULFATE
     Indication: Wheezing
     Dosage: TAKE 2 PUFFS BY INHALATION EVERY 4 HOURS AS NEEDED, (90 BASE), MCG/ACT INHALER 3
     Route: 055
     Dates: start: 20250127
  23. VENTOLIN HFA [Concomitant]
     Active Substance: ALBUTEROL SULFATE
     Indication: Dyspnoea
  24. ZITHROMAX [Concomitant]
     Active Substance: AZITHROMYCIN DIHYDRATE
     Indication: Product used for unknown indication
     Dosage: TAKE 1 TABLET BY MOUTH 30 TABLET 3 TIMES WEEKLY. START AZITHROMYCIN, THEN ADD ETHAMBUTOL NEXT WEEK A
     Route: 048
     Dates: start: 20250821

REACTIONS (1)
  - Rash [Recovering/Resolving]
